FAERS Safety Report 8014634-9 (Version None)
Quarter: 2011Q4

REPORT INFORMATION
  Report Type: 
  Country: None (occurrence: None)
  Receive Date: 20111229
  Receipt Date: 20111207
  Transmission Date: 20120403
  Serious: Yes (Other)
  Sender: FDA-Public Use
  Company Number: PHHY2011SE08489

PATIENT
  Sex: Female

DRUGS (5)
  1. ZOLPIDEM TARTRATE [Concomitant]
     Dosage: UNK UKN, UNK
  2. RITALIN [Suspect]
  3. TRAMADOL HCL [Concomitant]
     Dosage: UNK UKN, UNK
  4. ACETAMINOPHEN [Concomitant]
     Dosage: UNK UKN, UNK
  5. ALPRAZOLAM [Concomitant]
     Dosage: UNK UKN, UNK

REACTIONS (2)
  - ABORTION SPONTANEOUS [None]
  - MATERNAL EXPOSURE DURING PREGNANCY [None]
